FAERS Safety Report 7820201 (Version 4)
Quarter: 2012Q4

REPORT INFORMATION
  Report Type: Report from Study
  Country: DE (occurrence: DE)
  Receive Date: 20110221
  Receipt Date: 20121231
  Transmission Date: 20130627
  Serious: Yes (Hospitalization)
  Sender: FDA-Public Use
  Company Number: DE-ROCHE-759393

PATIENT
  Age: 88 Year
  Sex: Female
  Weight: 70 kg

DRUGS (5)
  1. BEVACIZUMAB [Suspect]
     Indication: BREAST CANCER METASTATIC
     Dosage: FREQ: DAY 1 OF 3 WEEK CYCLE (PER PROTOCOL)LAST DOSE PRIOR TO SAE: 29 NOV 2010
     Route: 042
  2. CAPECITABINE [Suspect]
     Indication: BREAST CANCER METASTATIC
     Dosage: FREQ: ON DAYS 1-14 OF 3 WEEK CYCLE (PER PROTOCOL)LAST DOSE PRIOR TO SAE: 12 DEC 2010
     Route: 048
  3. VINORELBINE [Suspect]
     Indication: BREAST CANCER METASTATIC
     Dosage: FREQ: ON DAYS 1 AND 8 OF A 3 WEEK CYCLE (PER PROTOCOL)LAST DOSE PRIOR TO SAE: 6 DEC 2010
     Route: 042
  4. MCP [Concomitant]
     Dosage: Drops as requested
     Route: 065
     Dates: start: 20101129
  5. CELLONDAN [Concomitant]
     Dosage: as requested
     Route: 065
     Dates: start: 20101129

REACTIONS (3)
  - General physical health deterioration [Recovered/Resolved]
  - Pancytopenia [Recovered/Resolved with Sequelae]
  - Bile duct stone [Recovered/Resolved]
